FAERS Safety Report 19461127 (Version 3)
Quarter: 2022Q2

REPORT INFORMATION
  Report Type: Spontaneous
  Country: US (occurrence: US)
  Receive Date: 20210625
  Receipt Date: 20220516
  Transmission Date: 20220721
  Serious: Yes (Hospitalization, Other)
  Sender: FDA-Public Use
  Company Number: US-TAKEDA-2021TUS036592

PATIENT
  Sex: Female

DRUGS (3)
  1. NINLARO [Suspect]
     Active Substance: IXAZOMIB CITRATE
     Indication: Plasma cell myeloma
     Dosage: 3 MILLIGRAM
     Route: 048
     Dates: start: 20190214
  2. NINLARO [Suspect]
     Active Substance: IXAZOMIB CITRATE
     Dosage: 3 MILLIGRAM
     Route: 048
     Dates: start: 20210421, end: 20220420
  3. DEXAMETHASONE [Suspect]
     Active Substance: DEXAMETHASONE
     Indication: Product used for unknown indication
     Dosage: UNK
     Route: 065

REACTIONS (10)
  - Syncope [Unknown]
  - Seizure [Unknown]
  - Malaise [Unknown]
  - Blood pressure increased [Unknown]
  - Dementia Alzheimer^s type [Unknown]
  - Illness [Unknown]
  - Diarrhoea [Unknown]
  - Back pain [Unknown]
  - Constipation [Unknown]
  - Peripheral swelling [Unknown]
